FAERS Safety Report 16535110 (Version 1)
Quarter: 2019Q3

REPORT INFORMATION
  Report Type: Other
  Country: CN (occurrence: CN)
  Receive Date: 20190705
  Receipt Date: 20190705
  Transmission Date: 20191004
  Serious: Yes (Hospitalization)
  Sender: FDA-Public Use
  Company Number: CN-ACI HEALTHCARE LIMITED-2070386

PATIENT
  Age: 89 Year
  Sex: Female

DRUGS (1)
  1. GABAPENTIN. [Suspect]
     Active Substance: GABAPENTIN
     Indication: ALLODYNIA
     Route: 065

REACTIONS (3)
  - Toxicity to various agents [Unknown]
  - Dysphagia [Recovered/Resolved]
  - Myoclonus [Recovered/Resolved]
